FAERS Safety Report 9461707 (Version 1)
Quarter: 2013Q3

REPORT INFORMATION
  Report Type: Report from Study
  Country: US (occurrence: US)
  Receive Date: 20130816
  Receipt Date: 20130816
  Transmission Date: 20140515
  Serious: Yes (Disabling)
  Sender: FDA-Public Use
  Company Number: US-ABBOTT-13P-163-1130293-00

PATIENT
  Age: 39 Year
  Sex: Male
  Weight: 106.24 kg

DRUGS (3)
  1. HUMIRA [Suspect]
     Indication: CROHN^S DISEASE
     Route: 058
     Dates: start: 20130618
  2. HYOSCAMINE [Concomitant]
     Indication: CROHN^S DISEASE
  3. 6MP [Concomitant]
     Indication: PRODUCT USED FOR UNKNOWN INDICATION

REACTIONS (1)
  - Dental caries [Unknown]
